FAERS Safety Report 12411569 (Version 1)
Quarter: 2016Q2

REPORT INFORMATION
  Report Type: Spontaneous
  Country: JP (occurrence: JP)
  Receive Date: 20160527
  Receipt Date: 20160527
  Transmission Date: 20160815
  Serious: Yes (Other)
  Sender: FDA-Public Use
  Company Number: JP-GLAXOSMITHKLINE-JP2016JPN072975

PATIENT
  Age: 67 Year
  Sex: Male

DRUGS (1)
  1. VALTREX [Suspect]
     Active Substance: VALACYCLOVIR HYDROCHLORIDE
     Indication: HERPES ZOSTER
     Route: 048

REACTIONS (6)
  - Tooth loss [Recovering/Resolving]
  - Exposed bone in jaw [Recovering/Resolving]
  - Osteonecrosis of jaw [Recovering/Resolving]
  - Periodontal disease [Recovering/Resolving]
  - Hypoaesthesia oral [Recovering/Resolving]
  - Disease progression [Recovering/Resolving]
